FAERS Safety Report 5397719-5 (Version None)
Quarter: 2007Q3

REPORT INFORMATION
  Report Type: 
  Country: None (occurrence: None)
  Receive Date: 20070723
  Receipt Date: 20070710
  Transmission Date: 20080115
  Serious: Yes (Life-Threatening)
  Sender: FDA-Public Use
  Company Number: 158656ISR

PATIENT
  Age: 85 Year
  Sex: Female

DRUGS (1)
  1. GABAPENTIN [Suspect]
     Dosage: 300 MG (300 MG, 1 IN 1 D) ORAL
     Route: 048
     Dates: end: 20070604

REACTIONS (2)
  - FEMORAL NECK FRACTURE [None]
  - HYPOXIA [None]
